FAERS Safety Report 4348967-4 (Version None)
Quarter: 2004Q2

REPORT INFORMATION
  Report Type: 
  Country: None (occurrence: None)
  Receive Date: 20040427
  Receipt Date: 20040427
  Transmission Date: 20050107
  Serious: Yes (Hospitalization)
  Sender: FDA-Public Use
  Company Number: None

PATIENT
  Sex: Female
  Weight: 90.4 kg

DRUGS (11)
  1. CYTOXAN [Suspect]
     Indication: BREAST CANCER
     Dosage: 100 MG/M2 PO QD X 14D Q 28D X 6
     Route: 048
     Dates: start: 19910709, end: 19911201
  2. METHOTREXATE [Suspect]
     Indication: BREAST CANCER
     Dosage: 40 MG/M2 IV D 1-8 Q 28 D X 6
     Route: 042
     Dates: start: 19910709, end: 19911201
  3. FLUOROURACIL [Suspect]
     Indication: BREAST CANCER
     Dosage: 600 MG/M2 IV D1-8 Q 28D X 6
     Route: 042
     Dates: start: 19910709, end: 19911201
  4. AVELOX [Concomitant]
  5. ADVAIR DISKUS 100/50 [Concomitant]
  6. COMBIVENT [Concomitant]
  7. LIPITOR [Concomitant]
  8. CELEBREX [Concomitant]
  9. LEXAPRO [Concomitant]
  10. FLONASE [Concomitant]
  11. ASPIRIN [Concomitant]

REACTIONS (5)
  - BUNDLE BRANCH BLOCK LEFT [None]
  - CARDIAC FAILURE [None]
  - CHEST DISCOMFORT [None]
  - DYSPNOEA EXERTIONAL [None]
  - FATIGUE [None]
